FAERS Safety Report 16240128 (Version 5)
Quarter: 2019Q4

REPORT INFORMATION
  Report Type: Spontaneous
  Country: CA (occurrence: CA)
  Receive Date: 20190425
  Receipt Date: 20191114
  Transmission Date: 20200122
  Serious: Yes (Other)
  Sender: FDA-Public Use
  Company Number: CA-PFIZER INC-2019126293

PATIENT
  Age: 51 Year
  Sex: Female
  Weight: 70 kg

DRUGS (3)
  1. BOSULIF [Suspect]
     Active Substance: BOSUTINIB MONOHYDRATE
     Indication: CHRONIC MYELOID LEUKAEMIA
     Dosage: 400 MG, DAILY
     Route: 048
     Dates: start: 20190402
  2. BOSULIF [Suspect]
     Active Substance: BOSUTINIB MONOHYDRATE
     Dosage: 200 MG, DAILY
     Route: 048
  3. BOSULIF [Suspect]
     Active Substance: BOSUTINIB MONOHYDRATE
     Dosage: 300 MG, DAILY

REACTIONS (8)
  - Neuropathy peripheral [Recovered/Resolved]
  - Drug intolerance [Unknown]
  - Nausea [Not Recovered/Not Resolved]
  - Body surface area increased [Unknown]
  - Weight decreased [Unknown]
  - Weight increased [Unknown]
  - Vomiting [Recovered/Resolved]
  - Body surface area decreased [Unknown]

NARRATIVE: CASE EVENT DATE: 20190925
